FAERS Safety Report 4372099-2 (Version None)
Quarter: 2004Q2

REPORT INFORMATION
  Report Type: 
  Country: None (occurrence: None)
  Receive Date: 20040602
  Receipt Date: 20040524
  Transmission Date: 20050107
  Serious: Yes (Hospitalization)
  Sender: FDA-Public Use
  Company Number: 04H-028-0261902-00

PATIENT
  Sex: Female

DRUGS (3)
  1. LEUCOVORIN CALCIUM [Suspect]
     Indication: CHEMOTHERAPY
     Dosage: 150 MG/M2, PER DAY, X 7 DAYS, INTRAVENOUS; DAY 1 OF RT - WEEKLY FOR 5 WKS
     Route: 042
  2. FLUOROURACIL [Suspect]
     Indication: CHEMOTHERAPY
     Dosage: 150 MG/M2, DAILY X 7 DAYS, INTRAVENOUS; DAY 1 OF RT - WEEKLY FOR 5 WKS -
     Route: 042
  3. SODIUM CHLORIDE INJ [Concomitant]

REACTIONS (5)
  - DIARRHOEA [None]
  - DRUG TOXICITY [None]
  - NAUSEA [None]
  - STOMATITIS [None]
  - VOMITING [None]
